FAERS Safety Report 8055984-X (Version None)
Quarter: 2012Q1

REPORT INFORMATION
  Report Type: 
  Country: None (occurrence: None)
  Receive Date: 20120119
  Receipt Date: 20120116
  Transmission Date: 20120608
  Serious: Yes (Other)
  Sender: FDA-Public Use
  Company Number: ES-ROCHE-1030593

PATIENT
  Age: 51 Year
  Sex: Male

DRUGS (1)
  1. ACTEMRA [Suspect]
     Indication: PSORIATIC ARTHROPATHY
     Route: 042
     Dates: start: 20110929, end: 20110929

REACTIONS (3)
  - DISEASE PROGRESSION [None]
  - PSORIASIS [None]
  - ARTHRITIS [None]
